FAERS Safety Report 6787673-3 (Version None)
Quarter: 2010Q2

REPORT INFORMATION
  Report Type: 
  Country: None (occurrence: None)
  Receive Date: 20100623
  Receipt Date: 20070723
  Transmission Date: 20101027
  Serious: No
  Sender: FDA-Public Use
  Company Number: US-PFIZER INC-2007062180

PATIENT
  Sex: Female
  Weight: 113.63 kg

DRUGS (6)
  1. SUTENT [Suspect]
     Indication: METASTATIC RENAL CELL CARCINOMA
     Route: 048
     Dates: start: 20070705, end: 20070719
  2. PENICILLINE [Concomitant]
  3. ACETYLSALICYLIC ACID [Concomitant]
  4. CARDIZEM [Concomitant]
  5. TRAZODONE HYDROCHLORIDE [Concomitant]
  6. BUPROPION HCL [Concomitant]

REACTIONS (7)
  - BLOOD ALKALINE PHOSPHATASE INCREASED [None]
  - GLOSSODYNIA [None]
  - HAEMOGLOBIN DECREASED [None]
  - ODYNOPHAGIA [None]
  - OEDEMA MOUTH [None]
  - ORAL PAIN [None]
  - PLATELET COUNT DECREASED [None]
